FAERS Safety Report 9610268 (Version 2)
Quarter: 2013Q4

REPORT INFORMATION
  Report Type: Spontaneous
  Country: US (occurrence: US)
  Receive Date: 20131009
  Receipt Date: 20131009
  Transmission Date: 20140711
  Serious: No
  Sender: FDA-Public Use
  Company Number: US-PURDUE-USA-2012-0096087

PATIENT
  Age: 28 Year
  Sex: Female

DRUGS (3)
  1. BUTRANS [Suspect]
     Indication: SCIATICA
     Dosage: 5 MCG, 1/WEEK
     Dates: start: 20121109
  2. BUTRANS [Suspect]
     Dosage: 5 MCG X2 (PATIENT WORE (2) 5MCG PATCHES AT THE SAME TIME)
     Route: 062
     Dates: end: 20121112
  3. BUTRANS [Suspect]
     Dosage: 10 MCG, UNK
     Route: 062

REACTIONS (4)
  - Extra dose administered [Recovered/Resolved]
  - Drug ineffective [Recovered/Resolved]
  - Hypoaesthesia [Recovered/Resolved]
  - Paraesthesia [Recovered/Resolved]
